FAERS Safety Report 17399279 (Version 1)
Quarter: 2020Q1

REPORT INFORMATION
  Report Type: Spontaneous
  Country: ES (occurrence: ES)
  Receive Date: 20200211
  Receipt Date: 20200211
  Transmission Date: 20200409
  Serious: Yes (Hospitalization)
  Sender: FDA-Public Use
  Company Number: ES-SUN PHARMACEUTICAL INDUSTRIES LTD-2020RR-236147

PATIENT
  Age: 57 Year
  Sex: Male

DRUGS (5)
  1. LEVETIRACETAM. [Suspect]
     Active Substance: LEVETIRACETAM
     Indication: SEIZURE
     Dosage: 1500 MILLIGRAM, BID
     Route: 042
     Dates: start: 20190429, end: 20190506
  2. ACICLOVIR [Interacting]
     Active Substance: ACYCLOVIR
     Indication: MENINGORADICULITIS
     Dosage: 700 MILLIGRAM, TID
     Route: 042
     Dates: start: 20190429, end: 20190506
  3. DEXAMETASONA (722A) [Concomitant]
     Active Substance: DEXAMETHASONE
     Indication: SEIZURE
     Dosage: 12 MILLIGRAM, DAILY
     Route: 042
     Dates: start: 20190429, end: 20190506
  4. AMPICILINA SODICA [Interacting]
     Active Substance: AMPICILLIN SODIUM
     Indication: MENINGORADICULITIS
     Dosage: 3.5 GRAM, QID
     Route: 042
     Dates: start: 20190429, end: 20190502
  5. CEFOTAXIMA (3840A) [Concomitant]
     Active Substance: CEFOTAXIME SODIUM
     Indication: MENINGORADICULITIS
     Dosage: 3.5 GRAM, QID
     Route: 042
     Dates: start: 20190429, end: 20190503

REACTIONS (1)
  - Acute kidney injury [Recovered/Resolved]

NARRATIVE: CASE EVENT DATE: 20190506
